FAERS Safety Report 5372353-1 (Version None)
Quarter: 2007Q2

REPORT INFORMATION
  Report Type: 
  Country: None (occurrence: None)
  Receive Date: 20070620
  Receipt Date: 20070404
  Transmission Date: 20071010
  Serious: No
  Sender: FDA-Public Use
  Company Number: 2007RL000157

PATIENT
  Age: 79 Year
  Sex: Male
  Weight: 70.3075 kg

DRUGS (3)
  1. OMACOR [Suspect]
     Indication: DRUG USE FOR UNKNOWN INDICATION
     Dosage: 3 GM;QD;PO   1 GM;QD;PO
     Route: 048
     Dates: start: 20060101
  2. BLOOD PRESSURE MEDICATION [Concomitant]
  3. HEART MEDICATION [Concomitant]

REACTIONS (4)
  - ERUCTATION [None]
  - INTENTIONAL DRUG MISUSE [None]
  - MEDICATION ERROR [None]
  - STOMACH DISCOMFORT [None]
